FAERS Safety Report 10418308 (Version 4)
Quarter: 2016Q2

REPORT INFORMATION
  Report Type: Spontaneous
  Country: US (occurrence: US)
  Receive Date: 20140827
  Receipt Date: 20160415
  Transmission Date: 20160815
  Serious: Yes (Hospitalization, Other)
  Sender: FDA-Public Use
  Company Number: ADR-2014-01509

PATIENT
  Age: 52 Year
  Sex: Male

DRUGS (8)
  1. LIORESAL [Suspect]
     Active Substance: BACLOFEN
     Dosage: 800 MCG/DAY
     Route: 037
  2. ITB BOLUS ^TEST^ [Suspect]
     Active Substance: BACLOFEN
     Dosage: 70 MCG OR 90 MCG
  3. COZAAR [Suspect]
     Active Substance: LOSARTAN POTASSIUM
  4. GLIPIZIDE. [Suspect]
     Active Substance: GLIPIZIDE
  5. GABLOFEN [Suspect]
     Active Substance: BACLOFEN
     Route: 037
  6. HYGROTON [Suspect]
     Active Substance: CHLORTHALIDONE
  7. DANTRIUM [Suspect]
     Active Substance: DANTROLENE SODIUM
  8. DILTIAZEM [Suspect]
     Active Substance: DILTIAZEM

REACTIONS (11)
  - Catheter site granuloma [None]
  - Hypoaesthesia [Unknown]
  - Muscle spasticity [None]
  - Urinary retention [Unknown]
  - Burning sensation [Unknown]
  - Muscle spasticity [Unknown]
  - Paraesthesia [Unknown]
  - Infusion site mass [Unknown]
  - Hypoaesthesia [None]
  - No therapeutic response [Unknown]
  - Paraesthesia [None]

NARRATIVE: CASE EVENT DATE: 20131223
